FAERS Safety Report 10197912 (Version 2)
Quarter: 2014Q2

REPORT INFORMATION
  Report Type: Spontaneous
  Country: JP (occurrence: JP)
  Receive Date: 20140527
  Receipt Date: 20140610
  Transmission Date: 20141212
  Serious: Yes (Death)
  Sender: FDA-Public Use
  Company Number: JP-CELGENEUS-087-21660-14054567

PATIENT
  Age: 49 Year
  Sex: Female
  Weight: 48 kg

DRUGS (12)
  1. ABRAXANE [Suspect]
     Indication: LUNG ADENOCARCINOMA METASTATIC
     Dosage: 106.5 MILLIGRAM
     Route: 041
     Dates: start: 20130611, end: 20130625
  2. CARBOPLATIN [Suspect]
     Indication: LUNG ADENOCARCINOMA METASTATIC
     Dosage: 739.5 MILLIGRAM
     Route: 065
     Dates: start: 20130611, end: 20130611
  3. CARBOPLATIN [Suspect]
     Route: 065
     Dates: start: 20130212
  4. PREDNISOLONE [Concomitant]
     Indication: PNEUMONIA
     Route: 048
     Dates: start: 20130525
  5. PREDNISOLONE [Concomitant]
     Dosage: 15 MILLIGRAM
     Route: 065
     Dates: start: 20130619
  6. FENTOS [Concomitant]
     Indication: CANCER PAIN
     Dosage: 4 MILLIGRAM
     Route: 048
     Dates: start: 20130612, end: 20130702
  7. OXINORM [Concomitant]
     Indication: CANCER PAIN
     Dosage: 4 MILLIGRAM
     Route: 048
  8. DECADRON [Concomitant]
     Indication: PROPHYLAXIS OF NAUSEA AND VOMITING
     Dosage: 4 MILLIGRAM
     Route: 048
     Dates: start: 20130612, end: 20130614
  9. RANMARK [Concomitant]
     Indication: LUNG ADENOCARCINOMA METASTATIC
     Dosage: 120 MILLIGRAM
     Route: 058
     Dates: start: 20130619, end: 20130619
  10. ZYPREXA [Concomitant]
     Indication: NAUSEA
     Dosage: 5 MILLIGRAM
     Route: 048
     Dates: start: 20130615, end: 20130618
  11. CRAVIT [Concomitant]
     Indication: PYREXIA
     Dosage: 500 MILLIGRAM
     Route: 048
     Dates: start: 20130621, end: 20130625
  12. AUGMENTIN [Concomitant]
     Indication: PYREXIA
     Dosage: 4 TABLET
     Route: 048
     Dates: start: 20130621, end: 20130625

REACTIONS (2)
  - Pneumonitis [Fatal]
  - Intentional product misuse [Fatal]
